FAERS Safety Report 5196558-8 (Version None)
Quarter: 2006Q4

REPORT INFORMATION
  Report Type: 
  Country: None (occurrence: None)
  Receive Date: 20061222
  Receipt Date: 20061213
  Transmission Date: 20070319
  Serious: Yes (Life-Threatening, Hospitalization)
  Sender: FDA-Public Use
  Company Number: MEDI-0005142

PATIENT
  Age: 2 Month
  Sex: Female
  Weight: 4.3 kg

DRUGS (4)
  1. SYNAGIS [Suspect]
     Indication: ANTIVIRAL PROPHYLAXIS
     Dosage: 65 MG, INTRAMUSCULAR
     Route: 030
     Dates: start: 20061106, end: 20061106
  2. FUROSEMIDE [Concomitant]
  3. SPIRONOLACTONE [Concomitant]
  4. ASPIRIN [Concomitant]

REACTIONS (6)
  - CARDIO-RESPIRATORY ARREST [None]
  - FEEDING DISORDER [None]
  - HAEMATOCRIT DECREASED [None]
  - HAEMOGLOBIN DECREASED [None]
  - RESPIRATORY FAILURE [None]
  - RESPIRATORY SYNCYTIAL VIRUS INFECTION [None]
